FAERS Safety Report 23571389 (Version 5)
Quarter: 2024Q3

REPORT INFORMATION
  Report Type: Report from Study
  Country: US (occurrence: US)
  Receive Date: 20240227
  Receipt Date: 20240806
  Transmission Date: 20241017
  Serious: Yes (Hospitalization, Other)
  Sender: PFIZER
  Company Number: US-PFIZER INC-PV202400025888

PATIENT
  Age: 80 Year
  Sex: Female

DRUGS (5)
  1. IBRANCE [Suspect]
     Active Substance: PALBOCICLIB
     Indication: Breast cancer female
     Dosage: ONCE DAILY FOR 21 DAYS OF A 28
     Route: 048
     Dates: start: 20240219
  2. IBRANCE [Suspect]
     Active Substance: PALBOCICLIB
     Dosage: 1 125MG TABLET BY MOUTH ONCE DAILY FOR 21/28 DAYS
     Route: 048
     Dates: end: 20240402
  3. IBRANCE [Suspect]
     Active Substance: PALBOCICLIB
     Dosage: 125 MG (1 125MG TABLET BY MOUTH ONCE DAILY FOR 21/28 DAYS)
     Route: 048
     Dates: start: 20240219, end: 202406
  4. IBRANCE [Suspect]
     Active Substance: PALBOCICLIB
     Dosage: 100 MG (1- 100MG TABLET BY MOUTH ONCE DAILY FOR 21/28 DAYS)
     Route: 048
     Dates: start: 20240219
  5. FULVESTRANT [Concomitant]
     Active Substance: FULVESTRANT
     Dosage: UNK

REACTIONS (5)
  - Colitis ulcerative [Unknown]
  - Abdominal pain [Unknown]
  - Condition aggravated [Unknown]
  - Flatulence [Unknown]
  - Feeling abnormal [Unknown]

NARRATIVE: CASE EVENT DATE: 20240403
